FAERS Safety Report 7406909-9 (Version None)
Quarter: 2011Q2

REPORT INFORMATION
  Report Type: 
  Country: None (occurrence: None)
  Receive Date: 20110406
  Receipt Date: 20110406
  Transmission Date: 20111010
  Serious: Yes (Other)
  Sender: FDA-Public Use
  Company Number: None

PATIENT
  Age: 47 Year
  Sex: Female
  Weight: 67.1324 kg

DRUGS (1)
  1. BROMPHENIRAMINE MALEATE + PSEUDOEPHEDRINE HCL [Suspect]
     Indication: RESPIRATORY DISORDER
     Dosage: ONE CAPSULE ONCE DAILY MOUTH
     Route: 048
     Dates: start: 20110224, end: 20110311

REACTIONS (4)
  - CONFUSIONAL STATE [None]
  - HALLUCINATION [None]
  - INSOMNIA [None]
  - TINNITUS [None]
